FAERS Safety Report 13347771 (Version 2)
Quarter: 2017Q1

REPORT INFORMATION
  Report Type: Spontaneous
  Country: US (occurrence: US)
  Receive Date: 20170317
  Receipt Date: 20170320
  Transmission Date: 20170428
  Serious: Yes (Hospitalization, Other)
  Sender: FDA-Public Use
  Company Number: US-ELI_LILLY_AND_COMPANY-US201608004902

PATIENT
  Sex: Male

DRUGS (4)
  1. SEROQUEL [Concomitant]
     Active Substance: QUETIAPINE FUMARATE
     Indication: PRODUCT USED FOR UNKNOWN INDICATION
     Dosage: 400 MG, QD
     Route: 065
  2. CYMBALTA [Suspect]
     Active Substance: DULOXETINE HYDROCHLORIDE
     Indication: PRODUCT USED FOR UNKNOWN INDICATION
     Dosage: 60 MG, QD
     Route: 048
  3. CLONAZEPAM. [Concomitant]
     Active Substance: CLONAZEPAM
     Indication: PRODUCT USED FOR UNKNOWN INDICATION
     Dosage: 0.5 MG, QD
     Route: 065
  4. QUETIAPINE FUMARATE. [Concomitant]
     Active Substance: QUETIAPINE FUMARATE
     Indication: PRODUCT USED FOR UNKNOWN INDICATION
     Dosage: 400 MG, QD
     Route: 065

REACTIONS (21)
  - Dysphoria [Unknown]
  - Dizziness [Unknown]
  - Seizure [Unknown]
  - Irritability [Unknown]
  - Drug withdrawal syndrome [Unknown]
  - Homicidal ideation [Unknown]
  - Hypomania [Unknown]
  - Vertigo [Unknown]
  - Headache [Unknown]
  - Lethargy [Unknown]
  - Tremor [Unknown]
  - Confusional state [Unknown]
  - Agitation [Unknown]
  - Suicidal ideation [Unknown]
  - Paraesthesia [Unknown]
  - Hyperhidrosis [Unknown]
  - Hallucinations, mixed [Unknown]
  - Affect lability [Unknown]
  - Insomnia [Unknown]
  - Anxiety [Unknown]
  - Fatigue [Unknown]

NARRATIVE: CASE EVENT DATE: 2015
